FAERS Safety Report 7421989-2 (Version None)
Quarter: 2011Q2

REPORT INFORMATION
  Report Type: 
  Country: None (occurrence: None)
  Receive Date: 20110418
  Receipt Date: 20110405
  Transmission Date: 20111010
  Serious: Yes (Other)
  Sender: FDA-Public Use
  Company Number: US-ELI_LILLY_AND_COMPANY-US201008006258

PATIENT
  Sex: Female
  Weight: 52.154 kg

DRUGS (19)
  1. FORTEO [Suspect]
     Indication: OSTEOPOROSIS
     Dosage: 20 UG, DAILY (1/D)
     Route: 058
     Dates: start: 20100801, end: 20110315
  2. FORTEO [Suspect]
     Dosage: 20 UG, DAILY (1/D)
     Route: 058
  3. STOOL SOFTENER [Concomitant]
     Indication: INTESTINAL FUNCTIONAL DISORDER
     Dosage: UNK, EACH EVENING
  4. DYAZIDE [Concomitant]
     Indication: FLUID RETENTION
  5. MILK OF MAGNESIA TAB [Concomitant]
     Indication: INTESTINAL FUNCTIONAL DISORDER
     Dosage: UNK, EACH EVENING
  6. CALTRATE [Concomitant]
  7. OSTEOCAPS [Concomitant]
  8. FORTEO [Suspect]
     Dosage: 20 UG, DAILY (1/D)
     Route: 058
  9. ESTER-C [Concomitant]
  10. LOVAZA [Concomitant]
  11. PRILOSEC [Concomitant]
  12. CLARITIN [Concomitant]
     Indication: HYPERSENSITIVITY
  13. COQ-10 [Concomitant]
     Dosage: 100 MG, UNK
  14. AZITHROMYCIN [Concomitant]
  15. ASCORBIC ACID [Concomitant]
     Dosage: UNK, DAILY (1/D)
  16. FORTEO [Suspect]
     Dosage: 20 UG, DAILY (1/D)
     Route: 058
  17. GLUCOSAMINE CHONDROITIN [Concomitant]
     Dosage: UNK, DAILY (1/D)
  18. ULTRACET [Concomitant]
     Indication: PAIN
     Dosage: UNK, EACH EVENING
  19. SERAX [Concomitant]

REACTIONS (17)
  - INFLUENZA [None]
  - MALAISE [None]
  - MACULAR DEGENERATION [None]
  - EYE PAIN [None]
  - HEADACHE [None]
  - BONE PAIN [None]
  - CARDIOVASCULAR DISORDER [None]
  - INJECTION SITE PAIN [None]
  - EYE HAEMORRHAGE [None]
  - VISUAL IMPAIRMENT [None]
  - CATARACT [None]
  - BLOOD PRESSURE INCREASED [None]
  - DIZZINESS [None]
  - NAUSEA [None]
  - ASTHENIA [None]
  - PAIN [None]
  - OROPHARYNGEAL PAIN [None]
